FAERS Safety Report 7151966-0 (Version None)
Quarter: 2010Q4

REPORT INFORMATION
  Report Type: 
  Country: None (occurrence: None)
  Receive Date: 20101210
  Receipt Date: 20101207
  Transmission Date: 20110411
  Serious: Yes (Hospitalization)
  Sender: FDA-Public Use
  Company Number: CA-AMGEN-CANCT2010007800

PATIENT

DRUGS (2)
  1. ETANERCEPT [Suspect]
     Indication: RHEUMATOID ARTHRITIS
     Dosage: UNK UNK, QWK
     Route: 058
     Dates: start: 20100412
  2. METHOTREXATE [Suspect]
     Dosage: UNK UNK, QWK
     Route: 058
     Dates: start: 20090629

REACTIONS (2)
  - PNEUMONIA [None]
  - SUICIDE ATTEMPT [None]
